FAERS Safety Report 13942605 (Version 8)
Quarter: 2019Q3

REPORT INFORMATION
  Report Type: Report from Study
  Country: JP (occurrence: JP)
  Receive Date: 20170907
  Receipt Date: 20190716
  Transmission Date: 20191004
  Serious: Yes (Hospitalization, Other)
  Sender: FDA-Public Use
  Company Number: JP-BRISTOL-MYERS SQUIBB COMPANY-BMS-2017-009596

PATIENT
  Age: 57 Year
  Sex: Female
  Weight: 61 kg

DRUGS (8)
  1. NIVOLUMAB [Suspect]
     Active Substance: NIVOLUMAB
     Indication: PRODUCT USED FOR UNKNOWN INDICATION
     Dosage: 3 MILLIGRAM/KILOGRAM
     Route: 065
  2. NIVOLUMAB [Suspect]
     Active Substance: NIVOLUMAB
     Indication: PRODUCT USED FOR UNKNOWN INDICATION
     Dosage: 240 MILLIGRAM, Q2WK
     Route: 065
  3. ALLERMIST [Concomitant]
     Active Substance: FLUTICASONE FUROATE
     Indication: SEASONAL ALLERGY
     Dosage: UNK
     Route: 045
     Dates: start: 20160405
  4. THYRADIN S [Concomitant]
     Active Substance: LEVOTHYROXINE SODIUM
     Indication: HYPOTHYROIDISM
     Dosage: 75 ?G, UNK
     Route: 048
     Dates: start: 20161111
  5. NIVOLUMAB [Suspect]
     Active Substance: NIVOLUMAB
     Indication: MALIGNANT MELANOMA STAGE IV
     Dosage: 2 MILLIGRAM/KILOGRAM, Q3WK
     Route: 065
  6. LOXOPROFEN NA [Concomitant]
     Active Substance: LOXOPROFEN SODIUM
     Indication: MALIGNANT MELANOMA STAGE IV
     Dosage: 60 MG, UNK
     Route: 048
     Dates: start: 20161021, end: 20161128
  7. IPILIMUMAB [Suspect]
     Active Substance: IPILIMUMAB
     Indication: MALIGNANT MELANOMA STAGE IV
     Dosage: 3 MG/M2, UNK
     Route: 041
     Dates: start: 20161104, end: 20161216
  8. INFLUENZA VACCINE [Concomitant]
     Active Substance: INFLUENZA VIRUS VACCINE
     Indication: ANTIVIRAL PROPHYLAXIS
     Dosage: UNK
     Route: 058
     Dates: start: 20161113

REACTIONS (4)
  - Hypothyroidism [Unknown]
  - Immune-mediated enterocolitis [Recovering/Resolving]
  - Alanine aminotransferase increased [Recovered/Resolved]
  - Aspartate aminotransferase increased [Recovered/Resolved]

NARRATIVE: CASE EVENT DATE: 20161205
